FAERS Safety Report 4778869-0 (Version None)
Quarter: 2005Q3

REPORT INFORMATION
  Report Type: 
  Country: None (occurrence: None)
  Receive Date: 20050926
  Receipt Date: 20050919
  Transmission Date: 20060218
  Serious: Yes (Death)
  Sender: FDA-Public Use
  Company Number: 2005AC01438

PATIENT
  Age: 28 Year
  Sex: Female

DRUGS (4)
  1. AMITRIPTYLINE HCL [Interacting]
  2. DIAZEPAM [Suspect]
  3. HEROIN [Interacting]
     Route: 042
  4. MORPHINE [Interacting]

REACTIONS (3)
  - DEATH [None]
  - DRUG INTERACTION [None]
  - DRUG INTERACTION POTENTIATION [None]
